FAERS Safety Report 8323387-6 (Version None)
Quarter: 2012Q2

REPORT INFORMATION
  Report Type: 
  Country: None (occurrence: None)
  Receive Date: 20120430
  Receipt Date: 20120418
  Transmission Date: 20120825
  Serious: Yes (Hospitalization, Other)
  Sender: FDA-Public Use
  Company Number: ES-ELI_LILLY_AND_COMPANY-ES201204006046

PATIENT
  Sex: Female

DRUGS (2)
  1. LAMOTRIGINE [Concomitant]
     Dosage: 50 MG, UNK
     Route: 048
  2. OLANZAPINE [Suspect]
     Dosage: 405 MG, UNK

REACTIONS (12)
  - DIZZINESS [None]
  - DYSARTHRIA [None]
  - AKATHISIA [None]
  - CONFUSIONAL STATE [None]
  - TACHYCARDIA [None]
  - EXTRAPYRAMIDAL DISORDER [None]
  - ANXIETY [None]
  - BODY TEMPERATURE INCREASED [None]
  - PARAESTHESIA [None]
  - CHOREOATHETOSIS [None]
  - PARAESTHESIA ORAL [None]
  - DISORIENTATION [None]
